FAERS Safety Report 18133544 (Version 1)
Quarter: 2020Q3

REPORT INFORMATION
  Report Type: Spontaneous
  Country: DE (occurrence: DE)
  Receive Date: 20200811
  Receipt Date: 20200811
  Transmission Date: 20201103
  Serious: Yes (Other)
  Sender: FDA-Public Use
  Company Number: NVSC2020DE216916

PATIENT
  Age: 8 Week
  Sex: Male

DRUGS (4)
  1. IBUPROFEN. [Suspect]
     Active Substance: IBUPROFEN
     Indication: FOETAL EXPOSURE DURING PREGNANCY
     Dosage: MOTHER DOSE: 400 MG, Q12H (CA. 3?4 TAGE)
     Route: 064
  2. MACROGOL [Suspect]
     Active Substance: POLYETHYLENE GLYCOLS
     Indication: FOETAL EXPOSURE DURING PREGNANCY
     Dosage: UNK (VON DER MUTTER POSTPARTAL EINGENOMMEN)
     Route: 063
  3. ROTAVIRUS VACCINE [Suspect]
     Active Substance: HUMAN ROTAVIRUS A
     Indication: FOETAL EXPOSURE DURING PREGNANCY
     Dosage: UNK
     Route: 048
  4. OBSTINOL [Suspect]
     Active Substance: CALCIUM PANTOTHENATE\DANTHRON
     Indication: FOETAL EXPOSURE DURING PREGNANCY
     Dosage: UNK (VON DER MUTTER POSTPARTAL EINGENOMMEN)
     Route: 063

REACTIONS (5)
  - Cholestasis [Unknown]
  - Hypovitaminosis [Unknown]
  - Transaminases increased [Recovered/Resolved]
  - Liver injury [Unknown]
  - Foetal exposure during pregnancy [Unknown]

NARRATIVE: CASE EVENT DATE: 2020
